FAERS Safety Report 8842199 (Version 4)
Quarter: 2013Q1

REPORT INFORMATION
  Report Type: Report from Study
  Country: US (occurrence: US)
  Receive Date: 20121016
  Receipt Date: 20130214
  Transmission Date: 20140127
  Serious: Yes (Hospitalization)
  Sender: FDA-Public Use
  Company Number: US-FRI-1000039162

PATIENT
  Age: 37 Year
  Sex: Female
  Weight: 90 kg

DRUGS (5)
  1. VILAZODONE (DOUBLE-BLIND) [Suspect]
     Indication: MAJOR DEPRESSION
     Route: 048
     Dates: start: 20120718, end: 20120926
  2. VIIBRYD [Suspect]
     Indication: MAJOR DEPRESSION
     Dosage: 10 MG DAILY; INGESTED 15 OR MORE TABLETS ON 30-SEP-2012
     Route: 048
     Dates: start: 20120927, end: 20120930
  3. PLACEBO [Suspect]
     Indication: MAJOR DEPRESSION
     Route: 048
     Dates: start: 20120718, end: 20120926
  4. BIAXIN XL [Concomitant]
     Indication: PHARYNGITIS STREPTOCOCCAL
     Dosage: 1000 MG
     Route: 048
     Dates: start: 20120208, end: 20120218
  5. BIAXIN XL [Concomitant]
     Indication: PHARYNGITIS STREPTOCOCCAL
     Dosage: 1000 MG
     Route: 048
     Dates: start: 20120208

REACTIONS (2)
  - Suicide attempt [Recovered/Resolved]
  - Intentional overdose [Recovered/Resolved]
